FAERS Safety Report 11845944 (Version 9)
Quarter: 2018Q3

REPORT INFORMATION
  Report Type: Spontaneous
  Country: OM (occurrence: OM)
  Receive Date: 20151217
  Receipt Date: 20180903
  Transmission Date: 20181010
  Serious: Yes (Other)
  Sender: FDA-Public Use
  Company Number: OM-PFIZER INC-2015362859

PATIENT
  Age: 6 Month
  Sex: Female

DRUGS (3)
  1. AMLODIPINE BESILATE [Suspect]
     Active Substance: AMLODIPINE BESYLATE
     Indication: HYPERTENSION
     Dosage: 5 MG, 1X/DAY (0.4 MG/KG/DAY)
  2. FLUCONAZOLE. [Interacting]
     Active Substance: FLUCONAZOLE
     Dosage: UNK
  3. HYDRALAZINE [Suspect]
     Active Substance: HYDRALAZINE HYDROCHLORIDE
     Indication: HYPERTENSION
     Dosage: 4 MG/KG, DAILY

REACTIONS (4)
  - Drug interaction [Unknown]
  - Weight increased [Recovered/Resolved]
  - Ascites [Recovered/Resolved]
  - Generalised oedema [Recovered/Resolved]
